FAERS Safety Report 7896678-0 (Version None)
Quarter: 2011Q4

REPORT INFORMATION
  Report Type: 
  Country: None (occurrence: None)
  Receive Date: 20111107
  Receipt Date: 20111024
  Transmission Date: 20120403
  Serious: No
  Sender: FDA-Public Use
  Company Number: US-BIOGENIDEC-2011BI040756

PATIENT
  Sex: Female

DRUGS (2)
  1. TYSABRI [Suspect]
     Indication: MULTIPLE SCLEROSIS
     Route: 042
     Dates: start: 20110603
  2. PREDNISONE [Concomitant]
     Indication: MULTIPLE SCLEROSIS

REACTIONS (9)
  - MOOD ALTERED [None]
  - CRYING [None]
  - EYE DISORDER [None]
  - CONFUSIONAL STATE [None]
  - CATARACT [None]
  - VISION BLURRED [None]
  - MUSCLE SPASMS [None]
  - BALANCE DISORDER [None]
  - MEMORY IMPAIRMENT [None]
